FAERS Safety Report 7261788-8 (Version None)
Quarter: 2011Q1

REPORT INFORMATION
  Report Type: 
  Country: None (occurrence: None)
  Receive Date: 20110124
  Receipt Date: 20110124
  Transmission Date: 20110831
  Serious: Yes (Other)
  Sender: FDA-Public Use
  Company Number: None

PATIENT
  Age: 47 Year
  Sex: Female
  Weight: 77.1115 kg

DRUGS (1)
  1. TRIAD ALCOHOL PAD ALCOHOL PAD [Suspect]

REACTIONS (5)
  - PAIN [None]
  - INJECTION SITE CELLULITIS [None]
  - INFECTION [None]
  - PYREXIA [None]
  - PRODUCT QUALITY ISSUE [None]
